FAERS Safety Report 17110388 (Version 1)
Quarter: 2019Q4

REPORT INFORMATION
  Report Type: Spontaneous
  Country: FR (occurrence: FR)
  Receive Date: 20191204
  Receipt Date: 20191204
  Transmission Date: 20200122
  Serious: Yes (Hospitalization)
  Sender: FDA-Public Use
  Company Number: FR-MYLANLABS-2019M1117126

PATIENT
  Age: 72 Year
  Sex: Male

DRUGS (2)
  1. KETOPROFEN. [Suspect]
     Active Substance: KETOPROFEN
     Indication: RENAL COLIC
     Dosage: UNK
     Route: 048
     Dates: start: 20190504, end: 20190514
  2. OFLOXACIN. [Suspect]
     Active Substance: OFLOXACIN
     Indication: RENAL COLIC
     Dosage: 400 MILLIGRAM, QD
     Route: 048
     Dates: start: 20190504, end: 20190514

REACTIONS (1)
  - Hypersensitivity vasculitis [Recovering/Resolving]

NARRATIVE: CASE EVENT DATE: 20190516
